FAERS Safety Report 5670412-7 (Version None)
Quarter: 2008Q1

REPORT INFORMATION
  Report Type: 
  Country: None (occurrence: None)
  Receive Date: 20080318
  Receipt Date: 20080307
  Transmission Date: 20080703
  Serious: Yes (Hospitalization, Other)
  Sender: FDA-Public Use
  Company Number: US-JNJFOC-20071201384

PATIENT
  Sex: Female
  Weight: 58.06 kg

DRUGS (3)
  1. REMICADE [Suspect]
     Route: 042
  2. REMICADE [Suspect]
     Indication: CROHN'S DISEASE
     Route: 042
  3. 6-MP [Concomitant]

REACTIONS (2)
  - COLOSTOMY [None]
  - CROHN'S DISEASE [None]
